FAERS Safety Report 4994463-0 (Version None)
Quarter: 2006Q1

REPORT INFORMATION
  Report Type: 
  Country: None (occurrence: None)
  Receive Date: 20060313
  Receipt Date: 20051212
  Transmission Date: 20060701
  Serious: No
  Sender: FDA-Public Use
  Company Number: 2005-BP-18652BP

PATIENT
  Sex: Female

DRUGS (5)
  1. SPIRIVA [Suspect]
     Indication: CHRONIC OBSTRUCTIVE PULMONARY DISEASE
     Dosage: 18 MCG (18 MCG,1 IN 1 D),IH
     Dates: start: 20040101
  2. SPIRIVA [Suspect]
     Indication: EMPHYSEMA
     Dosage: 18 MCG (18 MCG,1 IN 1 D),IH
     Dates: start: 20040101
  3. SPIRIVA [Suspect]
  4. ADVAIR (SERETIDE) [Concomitant]
  5. ALBUTEROL [Concomitant]

REACTIONS (3)
  - DYSPNOEA [None]
  - INCREASED UPPER AIRWAY SECRETION [None]
  - PNEUMONIA [None]
